FAERS Safety Report 4777383-6 (Version None)
Quarter: 2005Q3

REPORT INFORMATION
  Report Type: 
  Country: None (occurrence: None)
  Receive Date: 20050921
  Receipt Date: 20050907
  Transmission Date: 20060218
  Serious: Yes (Death)
  Sender: FDA-Public Use
  Company Number: US_0503113579

PATIENT
  Age: 47 Year
  Sex: Male
  Weight: 77 kg

DRUGS (4)
  1. ZYPREXA [Suspect]
     Indication: SCHIZOPHRENIA
     Dosage: UNK
     Route: 065
     Dates: start: 19980101, end: 20030101
  2. GEODON [Concomitant]
  3. HALOPERIDOL [Concomitant]
  4. SERTRALINE HCL [Concomitant]

REACTIONS (2)
  - HYPERGLYCAEMIA [None]
  - HYPERTENSION [None]
